FAERS Safety Report 8578807-9 (Version None)
Quarter: 2012Q3

REPORT INFORMATION
  Report Type: 
  Country: None (occurrence: None)
  Receive Date: 20120801
  Receipt Date: 20120801
  Transmission Date: 20120928
  Serious: Yes (Other)
  Sender: FDA-Public Use
  Company Number: None

PATIENT
  Age: 35 Year
  Sex: Female
  Weight: 61.2356 kg

DRUGS (1)
  1. BUPROPION HYDROCHLORIDE [Suspect]
     Indication: DEPRESSION
     Dosage: 300MG 2X DAY PO
     Route: 048
     Dates: start: 20120401, end: 20120731

REACTIONS (7)
  - PRODUCT SUBSTITUTION ISSUE [None]
  - LETHARGY [None]
  - HEADACHE [None]
  - DRUG INEFFECTIVE [None]
  - DEPRESSION [None]
  - FEELING ABNORMAL [None]
  - DISEASE RECURRENCE [None]
